FAERS Safety Report 14239696 (Version 1)
Quarter: 2017Q4

REPORT INFORMATION
  Report Type: Spontaneous
  Country: EG (occurrence: EG)
  Receive Date: 20171130
  Receipt Date: 20171130
  Transmission Date: 20180321
  Serious: Yes (Other)
  Sender: FDA-Public Use
  Company Number: EG-GLAXOSMITHKLINE-EG2017GSK182205

PATIENT

DRUGS (1)
  1. CATAFAST [Suspect]
     Active Substance: DICLOFENAC POTASSIUM
     Indication: PRODUCT USED FOR UNKNOWN INDICATION
     Dosage: UNK
     Route: 065

REACTIONS (7)
  - Gastrointestinal disorder [Unknown]
  - Calculus urinary [Unknown]
  - Disturbance in attention [Unknown]
  - Urinary tract disorder [Unknown]
  - Nervous system disorder [Unknown]
  - Renal disorder [Unknown]
  - Liver disorder [Unknown]
